FAERS Safety Report 6593215-8 (Version None)
Quarter: 2010Q1

REPORT INFORMATION
  Report Type: 
  Country: None (occurrence: None)
  Receive Date: 20100222
  Receipt Date: 20100217
  Transmission Date: 20100710
  Serious: Yes (Other)
  Sender: FDA-Public Use
  Company Number: PHHY2009FR41392

PATIENT
  Sex: Male

DRUGS (4)
  1. STALEVO 100 [Suspect]
     Indication: PARKINSON'S DISEASE
     Dosage: 3 DF, DAILY
     Dates: start: 20090616
  2. NEURONTIN [Concomitant]
     Indication: PAIN IN EXTREMITY
     Dosage: 3 DF, DAILY
  3. CIALIS [Concomitant]
     Indication: MALE SEXUAL DYSFUNCTION
     Dosage: TIME TO TIME
  4. GUTRON [Concomitant]
     Indication: ORTHOSTATIC HYPOTENSION
     Dosage: 6 DF, DAILY

REACTIONS (3)
  - EXCESSIVE MASTURBATION [None]
  - EXHIBITIONISM [None]
  - INTENTIONAL DRUG MISUSE [None]
